FAERS Safety Report 11613888 (Version 4)
Quarter: 2015Q4

REPORT INFORMATION
  Report Type: Report from Study
  Country: US (occurrence: US)
  Receive Date: 20151008
  Receipt Date: 20151027
  Transmission Date: 20160304
  Serious: Yes (Hospitalization, Other)
  Sender: FDA-Public Use
  Company Number: PHEH2015US019924

PATIENT
  Sex: Female

DRUGS (1)
  1. COSENTYX [Suspect]
     Active Substance: SECUKINUMAB
     Indication: PSORIASIS
     Dosage: 300 MG, QW
     Route: 058
     Dates: start: 20150917

REACTIONS (5)
  - Rash generalised [Recovered/Resolved]
  - Erythema [Unknown]
  - Hypersensitivity [Unknown]
  - Psoriasis [Unknown]
  - Flushing [Unknown]
